FAERS Safety Report 14755390 (Version 3)
Quarter: 2018Q2

REPORT INFORMATION
  Report Type: Report from Study
  Country: US (occurrence: US)
  Receive Date: 20180413
  Receipt Date: 20180517
  Transmission Date: 20180711
  Serious: Yes (Hospitalization)
  Sender: FDA-Public Use
  Company Number: US-TAKEDA-2018MPI003649

PATIENT
  Age: 63 Year
  Sex: Female
  Weight: 64 kg

DRUGS (11)
  1. ONDANSETRON [Concomitant]
     Active Substance: ONDANSETRON
     Dosage: 8 MG, Q8HR
  2. BENZONATATE. [Concomitant]
     Active Substance: BENZONATATE
     Dosage: 200 MG, TID
  3. DOCUSATE SODIUM. [Concomitant]
     Active Substance: DOCUSATE SODIUM
     Dosage: 100 MG, UNK
  4. IXAZOMIB [Suspect]
     Active Substance: IXAZOMIB
     Indication: OESTROGEN RECEPTOR POSITIVE BREAST CANCER
     Dosage: 4 MG, UNK
     Route: 048
     Dates: start: 20180209
  5. FULVESTRANT. [Concomitant]
     Active Substance: FULVESTRANT
     Indication: OESTROGEN RECEPTOR POSITIVE BREAST CANCER
     Dosage: 500 MG, UNK
     Route: 030
     Dates: start: 20180209
  6. PROCHLORPERAZINE. [Concomitant]
     Active Substance: PROCHLORPERAZINE
     Dosage: 10 MG, Q6HR
  7. OMEPRAZOLE. [Concomitant]
     Active Substance: OMEPRAZOLE
     Dosage: 40 MG, QD
  8. SENNA                              /00142201/ [Concomitant]
     Active Substance: SENNA LEAF
     Dosage: 8.6 MG, BID
  9. LEVETIRACETAM. [Concomitant]
     Active Substance: LEVETIRACETAM
     Dosage: 500 MG, BID
  10. CITALOPRAM [Concomitant]
     Active Substance: CITALOPRAM HYDROBROMIDE
     Dosage: 10 MG, UNK
  11. ACETAMINOPHEN AND DIPHENHYDRAMINE HYDROCHLORIDE [Concomitant]
     Active Substance: ACETAMINOPHEN\DIPHENHYDRAMINE HYDROCHLORIDE
     Dosage: UNK

REACTIONS (1)
  - Dyspnoea [Recovered/Resolved]

NARRATIVE: CASE EVENT DATE: 20180404
